FAERS Safety Report 5049112-2 (Version None)
Quarter: 2006Q3

REPORT INFORMATION
  Report Type: 
  Country: None (occurrence: None)
  Receive Date: 20060706
  Receipt Date: 20060623
  Transmission Date: 20061208
  Serious: Yes (Other)
  Sender: FDA-Public Use
  Company Number: 2006082326

PATIENT
  Age: 72 Year
  Sex: Female

DRUGS (7)
  1. LIPITOR [Suspect]
     Indication: HYPERCHOLESTEROLAEMIA
     Dosage: ORAL
     Route: 048
  2. ACTOS [Suspect]
     Dosage: ORAL
     Route: 048
  3. FAMOTIDINE [Suspect]
     Dosage: ORAL
     Route: 048
  4. NORVASC [Concomitant]
  5. AMARYL [Concomitant]
  6. SUCRALFATE [Concomitant]
  7. YOKUKAN-SAN          (HERBAL EXTRACTS NOS) [Concomitant]

REACTIONS (7)
  - ALANINE AMINOTRANSFERASE INCREASED [None]
  - ASPARTATE AMINOTRANSFERASE INCREASED [None]
  - FACE OEDEMA [None]
  - LIVER DISORDER [None]
  - MALAISE [None]
  - NASOPHARYNGITIS [None]
  - OEDEMA PERIPHERAL [None]
